FAERS Safety Report 18946687 (Version 1)
Quarter: 2021Q1

REPORT INFORMATION
  Report Type: Report from Study
  Country: BR (occurrence: BR)
  Receive Date: 20210226
  Receipt Date: 20210226
  Transmission Date: 20210420
  Serious: Yes (Death)
  Sender: FDA-Public Use
  Company Number: NVSC2021BR045377

PATIENT
  Sex: Male

DRUGS (1)
  1. EXELON PATCH [Suspect]
     Active Substance: RIVASTIGMINE
     Indication: PRODUCT USED FOR UNKNOWN INDICATION
     Dosage: UNK, QD (STARTED 6 YEARS AGO)
     Route: 065

REACTIONS (4)
  - Dementia Alzheimer^s type [Fatal]
  - Parkinson^s disease [Fatal]
  - Septic shock [Fatal]
  - Pneumonia [Fatal]
